FAERS Safety Report 13363749 (Version 1)
Quarter: 2017Q1

REPORT INFORMATION
  Report Type: Spontaneous
  Country: IT (occurrence: IT)
  Receive Date: 20170323
  Receipt Date: 20170323
  Transmission Date: 20170429
  Serious: Yes (Hospitalization, Other)
  Sender: FDA-Public Use
  Company Number: US-ASTRAZENECA-2017SE29929

PATIENT
  Age: 74 Year
  Sex: Female

DRUGS (4)
  1. ADALAT CRONO [Interacting]
     Active Substance: NIFEDIPINE
     Indication: HYPERTENSION
     Route: 048
     Dates: start: 20160928, end: 20160928
  2. BLOPRESID [Suspect]
     Active Substance: CANDESARTAN CILEXETIL\HYDROCHLOROTHIAZIDE
     Indication: HYPERTENSION
     Route: 048
  3. LASIX [Interacting]
     Active Substance: FUROSEMIDE
     Indication: HYPERTENSION
     Dosage: 500 MG ( 0.25 DOSAGE UNIT/DAILY)
     Route: 048
     Dates: start: 20160928, end: 20160928
  4. ANTRA [Concomitant]
     Active Substance: OMEPRAZOLE

REACTIONS (5)
  - Drug interaction [Unknown]
  - Hyponatraemia [Recovering/Resolving]
  - Muscle spasms [Recovering/Resolving]
  - Blood creatine phosphokinase increased [Recovering/Resolving]
  - Rhabdomyolysis [Recovering/Resolving]

NARRATIVE: CASE EVENT DATE: 20160928
